FAERS Safety Report 22086449 (Version 1)
Quarter: 2023Q1

REPORT INFORMATION
  Report Type: Spontaneous
  Country: IL (occurrence: IL)
  Receive Date: 20230312
  Receipt Date: 20230312
  Transmission Date: 20230418
  Serious: Yes (Other)
  Sender: FDA-Public Use
  Company Number: IL-002147023-NVSC2023IL052632

PATIENT
  Sex: Female

DRUGS (3)
  1. INCLISIRAN [Suspect]
     Active Substance: INCLISIRAN
     Indication: Hypercholesterolaemia
     Dosage: 284 UNK (UNIT NOT REPORTED)
     Route: 058
  2. INCLISIRAN [Suspect]
     Active Substance: INCLISIRAN
     Dosage: UNK (SECOND DOSE)
     Route: 058
  3. INCLISIRAN [Suspect]
     Active Substance: INCLISIRAN
     Dosage: UNK (THIRD DOSE)
     Route: 058

REACTIONS (2)
  - Low density lipoprotein increased [Not Recovered/Not Resolved]
  - Therapeutic product effect incomplete [Not Recovered/Not Resolved]
